FAERS Safety Report 24565607 (Version 1)
Quarter: 2024Q4

REPORT INFORMATION
  Report Type: Spontaneous
  Country: EG (occurrence: EG)
  Receive Date: 20241030
  Receipt Date: 20241030
  Transmission Date: 20250114
  Serious: Yes (Life-Threatening, Other)
  Sender: TERSERA THERAPEUTICS
  Company Number: EG-ASTRAZENECA-2019EG00066

PATIENT

DRUGS (2)
  1. GOSERELIN [Suspect]
     Active Substance: GOSERELIN
     Indication: Product used for unknown indication
     Dosage: 4 MILLIGRAM, UNK
     Route: 065
     Dates: start: 20180404, end: 20191104
  2. ZOLADEX [Suspect]
     Active Substance: GOSERELIN ACETATE
     Indication: Product used for unknown indication
     Dosage: UNK
     Route: 065

REACTIONS (1)
  - Abdominal mass [Unknown]

NARRATIVE: CASE EVENT DATE: 20190315
